FAERS Safety Report 7907755-X (Version None)
Quarter: 2011Q4

REPORT INFORMATION
  Report Type: 
  Country: None (occurrence: None)
  Receive Date: 20111110
  Receipt Date: 20111101
  Transmission Date: 20120403
  Serious: Yes (Hospitalization)
  Sender: FDA-Public Use
  Company Number: KR-ASTRAZENECA-2011SE65967

PATIENT
  Age: 25522 Day
  Sex: Female

DRUGS (4)
  1. CRESTOR [Suspect]
     Indication: HYPERCHOLESTEROLAEMIA
     Route: 048
     Dates: start: 20041202
  2. ALDACTONE [Concomitant]
     Route: 048
     Dates: start: 20041119, end: 20050328
  3. ASPIRIN [Concomitant]
     Route: 048
     Dates: start: 20041202, end: 20050328
  4. DICHLOZID [Concomitant]
     Route: 048
     Dates: start: 20041119, end: 20050328

REACTIONS (1)
  - GASTRIC ULCER [None]
